FAERS Safety Report 7394608-1 (Version None)
Quarter: 2011Q2

REPORT INFORMATION
  Report Type: 
  Country: None (occurrence: None)
  Receive Date: 20110405
  Receipt Date: 20110309
  Transmission Date: 20111010
  Serious: No
  Sender: FDA-Public Use
  Company Number: US-B.I. PHARMACEUTICALS,INC./RIDGEFIELD-2011-BP-07523BP

PATIENT
  Age: 74 Year
  Sex: Female

DRUGS (6)
  1. PRADAXA [Suspect]
     Indication: ATRIAL FIBRILLATION
     Dosage: 300 MG
     Route: 048
     Dates: start: 20110131, end: 20110201
  2. PRAVASTATIN [Concomitant]
  3. HYZAAR [Concomitant]
  4. PRADAXA [Suspect]
     Dosage: 300 MG
     Route: 048
     Dates: start: 20110201
  5. FLUOXETINE [Concomitant]
     Dosage: 20 MG
  6. METOPROLOL [Concomitant]
     Indication: HYPERTENSION
     Dosage: 100 MG

REACTIONS (4)
  - DYSPEPSIA [None]
  - DIZZINESS [None]
  - HEADACHE [None]
  - MUSCLE SPASMS [None]
